FAERS Safety Report 5474585-0 (Version None)
Quarter: 2007Q3

REPORT INFORMATION
  Report Type: 
  Country: None (occurrence: None)
  Receive Date: 20070831
  Receipt Date: 20070626
  Transmission Date: 20080115
  Serious: No
  Sender: FDA-Public Use
  Company Number: 232397

PATIENT
  Age: 85 Year
  Sex: Female
  Weight: 60.3 kg

DRUGS (6)
  1. LUCENTIS [Suspect]
     Indication: MACULAR DEGENERATION
     Dosage: INTRAVITREAL
     Dates: start: 20061101
  2. DIOVAN [Concomitant]
  3. HYDROCHLOROTHIAZIDE [Concomitant]
  4. ATENOLOL [Concomitant]
  5. MULTIVITAMIN (MULTIVITAMINS NOS) [Concomitant]
  6. OCUVITE PRESERVISION (ASCORBIC ACID, BETA CAROTENE, COPPER, VITAMIN E, [Concomitant]

REACTIONS (2)
  - EYE PAIN [None]
  - RHINORRHOEA [None]
